FAERS Safety Report 25123434 (Version 1)
Quarter: 2025Q1

REPORT INFORMATION
  Report Type: Spontaneous
  Country: US (occurrence: US)
  Receive Date: 20250326
  Receipt Date: 20250326
  Transmission Date: 20250409
  Serious: No
  Sender: GRIFOLS
  Company Number: US-IGSA-BIG0029848

PATIENT
  Sex: Female
  Weight: 155 kg

DRUGS (20)
  1. PROLASTIN-C LIQUID [Suspect]
     Active Substance: .ALPHA.1-PROTEINASE INHIBITOR HUMAN
     Indication: Alpha-1 antitrypsin deficiency
     Dosage: UNK, Q.WK.
     Route: 042
  2. DUPIXENT [Concomitant]
     Active Substance: DUPILUMAB
  3. TORSEMIDE [Concomitant]
     Active Substance: TORSEMIDE
  4. DICYCLOMINE HYDROCHLORIDE [Concomitant]
     Active Substance: DICYCLOMINE HYDROCHLORIDE
  5. BACLOFEN [Concomitant]
     Active Substance: BACLOFEN
  6. SPIRONOLACTONE [Concomitant]
     Active Substance: SPIRONOLACTONE
  7. LEVOTHYROXINE SODIUM [Concomitant]
     Active Substance: LEVOTHYROXINE SODIUM
  8. VITAMIN D3 [Concomitant]
     Active Substance: CHOLECALCIFEROL
  9. CALCIUM CARBONATE\VITAMIN D [Concomitant]
     Active Substance: CALCIUM CARBONATE\VITAMIN D
  10. DOCONEXENT\ICOSAPENT [Concomitant]
     Active Substance: DOCONEXENT\ICOSAPENT
  11. MAGNESIUM [Concomitant]
     Active Substance: MAGNESIUM
  12. LISINOPRIL [Concomitant]
     Active Substance: LISINOPRIL
  13. NITROGLYCERIN [Concomitant]
     Active Substance: NITROGLYCERIN
     Route: 060
  14. OXYGEN [Concomitant]
     Active Substance: OXYGEN
  15. EPINEPHRINE [Concomitant]
     Active Substance: EPINEPHRINE
  16. DEXTROSE\SODIUM CHLORIDE [Concomitant]
     Active Substance: DEXTROSE\SODIUM CHLORIDE
  17. FAMOTIDINE [Concomitant]
     Active Substance: FAMOTIDINE
  18. MELOXICAM [Concomitant]
     Active Substance: MELOXICAM
  19. LIDOCAINE\PRILOCAINE [Concomitant]
     Active Substance: LIDOCAINE\PRILOCAINE
  20. VITAMIN B12 [Concomitant]
     Active Substance: CYANOCOBALAMIN

REACTIONS (5)
  - Pneumonia [Unknown]
  - Upper respiratory tract infection [Unknown]
  - Pruritus [Unknown]
  - Dry skin [Unknown]
  - Multiple allergies [Unknown]
